FAERS Safety Report 10230616 (Version 1)
Quarter: 2014Q2

REPORT INFORMATION
  Report Type: Spontaneous
  Country: DK (occurrence: DK)
  Receive Date: 20140611
  Receipt Date: 20140611
  Transmission Date: 20141212
  Serious: Yes (Other)
  Sender: FDA-Public Use
  Company Number: DK-MYLANLABS-2014S1012587

PATIENT
  Age: 70 Year
  Sex: Female
  Weight: 85 kg

DRUGS (8)
  1. METOMYLAN [Suspect]
     Indication: CARDIAC FAILURE
     Dosage: STYRKE: 100MG
     Route: 048
     Dates: start: 20140207, end: 20140210
  2. MULTAQ [Concomitant]
     Indication: CARDIAC DISORDER
  3. MICARDIS [Concomitant]
     Indication: CARDIAC DISORDER
  4. FURIX [Concomitant]
     Indication: CARDIAC DISORDER
  5. SPIRONOLACTONE [Concomitant]
     Indication: CARDIAC DISORDER
  6. EZETROL [Concomitant]
  7. MAREVAN [Concomitant]
  8. METFORMIN [Concomitant]
     Indication: DIABETES MELLITUS

REACTIONS (2)
  - Angina pectoris [Recovered/Resolved]
  - Product substitution issue [Recovered/Resolved]
